FAERS Safety Report 13689564 (Version 4)
Quarter: 2017Q3

REPORT INFORMATION
  Report Type: Report from Study
  Country: CL (occurrence: CL)
  Receive Date: 20170626
  Receipt Date: 20170803
  Transmission Date: 20171127
  Serious: Yes (Other)
  Sender: FDA-Public Use
  Company Number: PHHY2017CL090216

PATIENT
  Sex: Male

DRUGS (3)
  1. OMNITROPE [Suspect]
     Active Substance: SOMATROPIN
     Dosage: 6 IU, QD
     Route: 058
  2. OMNITROPE [Suspect]
     Active Substance: SOMATROPIN
     Indication: GROWTH HORMONE DEFICIENCY
     Dosage: 5 IU, QD
     Route: 058
     Dates: start: 20170601
  3. METOTREXATE [Concomitant]
     Active Substance: METHOTREXATE SODIUM
     Indication: PRODUCT USED FOR UNKNOWN INDICATION
     Dosage: 6 DF, QW (SATURDAYS)
     Route: 065

REACTIONS (11)
  - Influenza [Unknown]
  - Headache [Unknown]
  - Rheumatoid arthritis [Unknown]
  - Abdominal pain upper [Unknown]
  - Arthritis [Unknown]
  - Bone pain [Unknown]
  - Drug ineffective [Unknown]
  - Juvenile idiopathic arthritis [Unknown]
  - Hypothyroidism [Unknown]
  - Precocious puberty [Unknown]
  - Arthralgia [Unknown]
